FAERS Safety Report 9775855 (Version 1)
Quarter: 2013Q4

REPORT INFORMATION
  Report Type: Spontaneous
  Country: GB (occurrence: GB)
  Receive Date: 20131220
  Receipt Date: 20131220
  Transmission Date: 20140711
  Serious: Yes (Other)
  Sender: FDA-Public Use
  Company Number: GB-WATSON-2013-23157

PATIENT
  Age: 49 Year
  Sex: Male

DRUGS (2)
  1. SERTRALINE (UNKNOWN) [Suspect]
     Indication: DEPRESSION
     Dosage: 150 MG, UNKNOWN
     Route: 048
     Dates: start: 200703
  2. OLANZAPINE [Concomitant]
     Indication: MANIA
     Dosage: 15 MG, UNKNOWN
     Route: 048
     Dates: start: 20080326

REACTIONS (3)
  - Alopecia [Not Recovered/Not Resolved]
  - Alopecia [Not Recovered/Not Resolved]
  - Hair colour changes [Not Recovered/Not Resolved]
